FAERS Safety Report 13047265 (Version 1)
Quarter: 2016Q4

REPORT INFORMATION
  Report Type: Report from Study
  Country: AU (occurrence: AU)
  Receive Date: 20161220
  Receipt Date: 20161220
  Transmission Date: 20170207
  Serious: Yes (Other)
  Sender: FDA-Public Use
  Company Number: AU-REGENERON PHARMACEUTICALS, INC.-2016-17257

PATIENT

DRUGS (3)
  1. EYLEA [Suspect]
     Active Substance: AFLIBERCEPT
     Indication: NEOVASCULAR AGE-RELATED MACULAR DEGENERATION
     Dosage: 2 MG, TO LEFT EYE, TOTAL NUMBER OF INJECTIONS NOT PROVIDED
     Route: 031
     Dates: start: 201212
  2. ADEFLO [Concomitant]
     Indication: PRODUCT USED FOR UNKNOWN INDICATION
  3. VENTOLIN [Concomitant]
     Active Substance: ALBUTEROL SULFATE
     Indication: PRODUCT USED FOR UNKNOWN INDICATION
     Dosage: UNK

REACTIONS (7)
  - Asthma [Unknown]
  - Dysphonia [Unknown]
  - Pertussis [Unknown]
  - Plantar fasciitis [Not Recovered/Not Resolved]
  - Cough [Unknown]
  - Visual impairment [Unknown]
  - Weight increased [Unknown]

NARRATIVE: CASE EVENT DATE: 201503
